FAERS Safety Report 9011481 (Version 3)
Quarter: 2013Q1

REPORT INFORMATION
  Report Type: Spontaneous
  Country: US (occurrence: US)
  Receive Date: 20130108
  Receipt Date: 20130204
  Transmission Date: 20140127
  Serious: Yes (Other)
  Sender: FDA-Public Use
  Company Number: PHEH2013US000585

PATIENT
  Sex: Female

DRUGS (5)
  1. GLEEVEC [Suspect]
     Indication: CHRONIC MYELOID LEUKAEMIA
     Dosage: 400 MG, QD
     Route: 048
     Dates: end: 2011
  2. GLEEVEC [Suspect]
     Dosage: 200MG DAILY
     Route: 048
     Dates: start: 201203
  3. ACEBUTOLOL [Concomitant]
  4. MVI [Concomitant]
  5. CALCIUM CARBONATE [Concomitant]

REACTIONS (5)
  - Vulvitis [Unknown]
  - Anaemia [Recovering/Resolving]
  - Drug intolerance [Unknown]
  - Neutropenia [Unknown]
  - Fatigue [Unknown]
